FAERS Safety Report 10788679 (Version 5)
Quarter: 2016Q1

REPORT INFORMATION
  Report Type: Report from Study
  Country: US (occurrence: US)
  Receive Date: 20150212
  Receipt Date: 20160218
  Transmission Date: 20160525
  Serious: Yes (Other)
  Sender: FDA-Public Use
  Company Number: US-SA-2014SA027733

PATIENT
  Age: 70 Year
  Sex: Female
  Weight: 156.6 kg

DRUGS (13)
  1. AUBAGIO [Suspect]
     Active Substance: TERIFLUNOMIDE
     Indication: MULTIPLE SCLEROSIS
     Route: 048
  2. LISINOPRIL. [Concomitant]
     Active Substance: LISINOPRIL
     Indication: MULTIPLE SCLEROSIS
  3. ZANAFLEX [Concomitant]
     Active Substance: TIZANIDINE HYDROCHLORIDE
     Indication: THYROID DISORDER
     Dosage: FREQUENCY IS NIGHTLY
  4. ZOLOFT [Concomitant]
     Active Substance: SERTRALINE HYDROCHLORIDE
     Indication: CHRONIC OBSTRUCTIVE PULMONARY DISEASE
  5. VITAMIN B12 [Concomitant]
     Active Substance: CYANOCOBALAMIN
     Indication: VITAMIN B12 DEFICIENCY
  6. SYNTHROID [Concomitant]
     Active Substance: LEVOTHYROXINE SODIUM
     Indication: BLOOD PRESSURE MEASUREMENT
  7. LORATADINE. [Concomitant]
     Active Substance: LORATADINE
     Indication: GASTROOESOPHAGEAL REFLUX DISEASE
  8. AUBAGIO [Suspect]
     Active Substance: TERIFLUNOMIDE
     Indication: MULTIPLE SCLEROSIS
     Route: 048
     Dates: start: 20131230
  9. DEXILANT [Concomitant]
     Active Substance: DEXLANSOPRAZOLE
     Indication: GASTROOESOPHAGEAL REFLUX DISEASE
  10. METOPROLOL. [Concomitant]
     Active Substance: METOPROLOL
     Indication: BLOOD CHOLESTEROL INCREASED
  11. LIVALO [Concomitant]
     Active Substance: PITAVASTATIN CALCIUM
     Indication: BLOOD PRESSURE MEASUREMENT
  12. DEXAR [Concomitant]
     Indication: GASTRIC DISORDER
  13. AUBAGIO [Suspect]
     Active Substance: TERIFLUNOMIDE
     Indication: MULTIPLE SCLEROSIS
     Route: 048
     Dates: start: 20140226, end: 20150205

REACTIONS (14)
  - Pneumonia [Unknown]
  - Eye operation [Unknown]
  - Multiple sclerosis relapse [Recovered/Resolved]
  - Tremor [Unknown]
  - Vitamin B12 decreased [Not Recovered/Not Resolved]
  - Alopecia [Unknown]
  - Cataract operation [Unknown]
  - Condition aggravated [Unknown]
  - Renal pain [Recovered/Resolved]
  - Hallucination [Unknown]
  - Memory impairment [Unknown]
  - Thinking abnormal [Unknown]
  - Memory impairment [Unknown]
  - Nervousness [Unknown]

NARRATIVE: CASE EVENT DATE: 201402
